FAERS Safety Report 4760695-X (Version None)
Quarter: 2005Q3

REPORT INFORMATION
  Report Type: 
  Country: None (occurrence: None)
  Receive Date: 20050826
  Receipt Date: 20050308
  Transmission Date: 20060218
  Serious: Yes (Other)
  Sender: FDA-Public Use
  Company Number: USA-2005-0019306

PATIENT
  Age: 41 Year
  Sex: Female
  Weight: 140.6 kg

DRUGS (5)
  1. OXYCONTIN [Suspect]
     Indication: PAIN
     Dosage: 40 MG
  2. VICODIN [Suspect]
  3. DEMEROL [Suspect]
  4. NAPROSYN [Concomitant]
  5. ELAVIL [Concomitant]

REACTIONS (1)
  - POLYSUBSTANCE ABUSE [None]
